FAERS Safety Report 24411463 (Version 1)
Quarter: 2024Q4

REPORT INFORMATION
  Report Type: Spontaneous
  Country: US (occurrence: None)
  Receive Date: 20241007
  Receipt Date: 20241007
  Transmission Date: 20250114
  Serious: Yes (unspecified)
  Sender: Public
  Company Number: None

PATIENT
  Age: 49 Year
  Sex: Female

DRUGS (1)
  1. OCALIVA [Suspect]
     Active Substance: OBETICHOLIC ACID
     Indication: Cholangitis
     Dosage: FREQUENCY : DAILY;?
     Route: 048
     Dates: start: 20230616

REACTIONS (1)
  - Rash [None]

NARRATIVE: CASE EVENT DATE: 20241007
